FAERS Safety Report 16915961 (Version 1)
Quarter: 2019Q4

REPORT INFORMATION
  Report Type: Spontaneous
  Country: GB (occurrence: GB)
  Receive Date: 20191014
  Receipt Date: 20191014
  Transmission Date: 20200122
  Serious: Yes (Life-Threatening, Other)
  Sender: FDA-Public Use
  Company Number: GB-MYLANLABS-2019M1096435

PATIENT
  Age: 52 Year
  Sex: Female
  Weight: 76 kg

DRUGS (4)
  1. LANSOPRAZOLE. [Concomitant]
     Active Substance: LANSOPRAZOLE
     Dosage: 30 MILLIGRAM, QD
     Dates: start: 20190513
  2. EVOREL SEQUI [Concomitant]
     Active Substance: ESTRADIOL\NORETHINDRONE ACETATE
     Dosage: 2 DOSAGE FORM, QW
     Route: 062
     Dates: start: 20190417
  3. NAPROXEN. [Suspect]
     Active Substance: NAPROXEN
     Indication: MENOPAUSE
     Dosage: 500 MILLIGRAM
     Route: 048
  4. FEMSEVEN                           /06804201/ [Concomitant]
     Dosage: AS DIRECTED
     Route: 062
     Dates: start: 20190417

REACTIONS (1)
  - Angioedema [Not Recovered/Not Resolved]

NARRATIVE: CASE EVENT DATE: 20190517
